FAERS Safety Report 10829870 (Version 1)
Quarter: 2015Q1

REPORT INFORMATION
  Report Type: Report from Study
  Country: US (occurrence: US)
  Receive Date: 20150219
  Receipt Date: 20150219
  Transmission Date: 20150721
  Serious: No
  Sender: FDA-Public Use
  Company Number: US-ABBVIE-14P-163-1191410-00

PATIENT
  Age: 49 Year
  Sex: Female

DRUGS (5)
  1. TRICOR [Concomitant]
     Active Substance: FENOFIBRATE
     Indication: CARDIOVASCULAR EVENT PROPHYLAXIS
  2. VSL [Concomitant]
     Indication: PRODUCT USED FOR UNKNOWN INDICATION
     Dates: start: 201311
  3. APRISO [Concomitant]
     Active Substance: MESALAMINE
     Indication: CROHN^S DISEASE
  4. HUMIRA [Suspect]
     Active Substance: ADALIMUMAB
     Indication: CROHN^S DISEASE
     Route: 058
     Dates: start: 201211
  5. NEXIUM [Concomitant]
     Active Substance: ESOMEPRAZOLE MAGNESIUM
     Indication: GASTROOESOPHAGEAL REFLUX DISEASE

REACTIONS (6)
  - Dizziness [Recovered/Resolved]
  - Paraesthesia [Unknown]
  - Vision blurred [Recovered/Resolved]
  - Blood glucose abnormal [Unknown]
  - Abdominal distension [Recovered/Resolved]
  - Hypoaesthesia [Unknown]

NARRATIVE: CASE EVENT DATE: 201310
